FAERS Safety Report 10195709 (Version 1)
Quarter: 2014Q2

REPORT INFORMATION
  Report Type: Spontaneous
  Country: US (occurrence: US)
  Receive Date: 20140527
  Receipt Date: 20140527
  Transmission Date: 20141212
  Serious: Yes (Other)
  Sender: FDA-Public Use
  Company Number: US-ASTRAZENECA-2014SE34638

PATIENT
  Age: 45 Year
  Sex: Female

DRUGS (1)
  1. PRILOSEC OTC [Suspect]
     Indication: HELICOBACTER INFECTION
     Route: 048
     Dates: start: 20140502

REACTIONS (3)
  - Peripheral swelling [Unknown]
  - Dizziness [Unknown]
  - Vertigo [Unknown]
